FAERS Safety Report 7104633-3 (Version None)
Quarter: 2010Q4

REPORT INFORMATION
  Report Type: 
  Country: None (occurrence: None)
  Receive Date: 20101116
  Receipt Date: 20101102
  Transmission Date: 20110411
  Serious: Yes (Other)
  Sender: FDA-Public Use
  Company Number: GB-RANBAXY-2010R1-39341

PATIENT

DRUGS (4)
  1. CLARITHROMYCIN [Suspect]
     Indication: PRODUCT USED FOR UNKNOWN INDICATION
     Dosage: UNK
     Route: 065
  2. CORTISONE [Suspect]
     Indication: PRODUCT USED FOR UNKNOWN INDICATION
     Dosage: UNK
     Route: 065
  3. INFLUENZA VIRUS [Suspect]
     Indication: PROPHYLAXIS
     Dosage: 1 DF, 1 / DAYS.
     Route: 065
     Dates: start: 20091001, end: 20091001
  4. PANDEMRIX [Suspect]
     Indication: PROPHYLAXIS
     Dosage: 1 DF, 1 DAYS
     Route: 065
     Dates: start: 20091101, end: 20091101

REACTIONS (14)
  - ARTHRALGIA [None]
  - ASTHMA [None]
  - COUGH [None]
  - DYSPNOEA [None]
  - FATIGUE [None]
  - HYPERSENSITIVITY [None]
  - ILL-DEFINED DISORDER [None]
  - INSOMNIA [None]
  - OBSTRUCTIVE AIRWAYS DISORDER [None]
  - RHINITIS [None]
  - RHINITIS PERENNIAL [None]
  - RHINORRHOEA [None]
  - SNEEZING [None]
  - WHEEZING [None]
